FAERS Safety Report 7423737-9 (Version None)
Quarter: 2011Q2

REPORT INFORMATION
  Report Type: 
  Country: None (occurrence: None)
  Receive Date: 20110407
  Receipt Date: 20110309
  Transmission Date: 20111010
  Serious: Yes (Other)
  Sender: FDA-Public Use
  Company Number: CIO11005244

PATIENT
  Sex: Male

DRUGS (1)
  1. METAMUCIL, VERSION/TEXTURE/FLAVOR UNKNOWN (PSYLLIUM HYDROPHILIC MUCILL [Suspect]
     Indication: POUCHITIS
     Dosage: UNK DOSE, 3/DAY, ORAL
     Route: 048

REACTIONS (3)
  - PRODUCT SOLUBILITY ABNORMAL [None]
  - MEDICATION RESIDUE [None]
  - RENAL IMPAIRMENT [None]
